FAERS Safety Report 5482753-7 (Version None)
Quarter: 2007Q4

REPORT INFORMATION
  Report Type: 
  Country: None (occurrence: None)
  Receive Date: 20071011
  Receipt Date: 20070928
  Transmission Date: 20080405
  Serious: Yes (Hospitalization)
  Sender: FDA-Public Use
  Company Number: JP-PFIZER INC-2007083059

PATIENT
  Age: 43 Year
  Sex: Male

DRUGS (7)
  1. LIPITOR [Suspect]
     Indication: HYPERLIPIDAEMIA
     Dosage: DAILY DOSE:10MG
     Route: 048
     Dates: start: 20070811, end: 20070827
  2. MEXITIL [Suspect]
     Dosage: DAILY DOSE:300MG
     Route: 048
     Dates: start: 20070720, end: 20070827
  3. TEGRETOL [Suspect]
     Dosage: DAILY DOSE:100MG
     Route: 048
     Dates: start: 20070807, end: 20070827
  4. PL GRAN. [Suspect]
     Dosage: DAILY DOSE:3GRAM
     Route: 048
     Dates: start: 20070822, end: 20070824
  5. VALSARTAN [Concomitant]
     Dosage: DAILY DOSE:20MG
     Route: 048
     Dates: start: 20070722, end: 20070827
  6. MELBIN [Concomitant]
     Dosage: DAILY DOSE:250MG
     Route: 048
     Dates: start: 20070810, end: 20070827
  7. LUDIOMIL [Concomitant]
     Dosage: DAILY DOSE:10MG
     Route: 048
     Dates: start: 20070815, end: 20070827

REACTIONS (2)
  - ERYTHEMA [None]
  - PYREXIA [None]
